FAERS Safety Report 6504357-7 (Version None)
Quarter: 2009Q4

REPORT INFORMATION
  Report Type: 
  Country: None (occurrence: None)
  Receive Date: 20091215
  Receipt Date: 20091208
  Transmission Date: 20100525
  Serious: Yes (Disabling, Other)
  Sender: FDA-Public Use
  Company Number: 2009AL007663

PATIENT
  Age: 45 Year
  Sex: Female

DRUGS (3)
  1. OXYCODONE HCL [Suspect]
     Dosage: PRN
  2. ACETAMINOPHEN [Concomitant]
  3. 5-AMINOSALICYLIC ACID [Concomitant]

REACTIONS (4)
  - DEAFNESS [None]
  - DRUG DEPENDENCE [None]
  - LIVER DISORDER [None]
  - RENAL DISORDER [None]
